FAERS Safety Report 8545627-0 (Version None)
Quarter: 2012Q3

REPORT INFORMATION
  Report Type: 
  Country: None (occurrence: None)
  Receive Date: 20120718
  Receipt Date: 20120718
  Transmission Date: 20120928
  Serious: Yes (Other)
  Sender: FDA-Public Use
  Company Number: None

PATIENT
  Sex: Male
  Weight: 76.6579 kg

DRUGS (1)
  1. KEPPRA [Suspect]
     Indication: CONVULSION
     Dosage: KEPPRA 1000 TID PO
     Route: 048
     Dates: start: 20120626

REACTIONS (3)
  - DIZZINESS [None]
  - HEADACHE [None]
  - PRODUCT SUBSTITUTION ISSUE [None]
